FAERS Safety Report 7241104-8 (Version None)
Quarter: 2011Q1

REPORT INFORMATION
  Report Type: 
  Country: None (occurrence: None)
  Receive Date: 20110120
  Receipt Date: 20110120
  Transmission Date: 20110831
  Serious: Yes (Life-Threatening)
  Sender: FDA-Public Use
  Company Number: None

PATIENT
  Age: 35 Year
  Sex: Female
  Weight: 49.8957 kg

DRUGS (1)
  1. CHANTIX [Suspect]
     Indication: SMOKING CESSATION THERAPY
     Dosage: 1 DAY PO
     Route: 048
     Dates: start: 20101217, end: 20110115

REACTIONS (11)
  - HALLUCINATION, VISUAL [None]
  - RASH GENERALISED [None]
  - PRURITUS [None]
  - BURNING SENSATION [None]
  - FEELING ABNORMAL [None]
  - SUICIDAL IDEATION [None]
  - DEPRESSION [None]
  - AGITATION [None]
  - AGGRESSION [None]
  - MANIA [None]
  - MOOD SWINGS [None]
